FAERS Safety Report 8321718-4 (Version None)
Quarter: 2012Q2

REPORT INFORMATION
  Report Type: 
  Country: None (occurrence: None)
  Receive Date: 20120426
  Receipt Date: 20120417
  Transmission Date: 20120825
  Serious: Yes (Hospitalization)
  Sender: FDA-Public Use
  Company Number: 217235

PATIENT
  Age: 38 Year
  Sex: Female
  Weight: 150 kg

DRUGS (1)
  1. INNOHEP [Suspect]
     Indication: DEEP VEIN THROMBOSIS
     Dosage: (1 IN 1 D), SUBCUTANEOUS
     Route: 058
     Dates: start: 20120401

REACTIONS (2)
  - DEEP VEIN THROMBOSIS [None]
  - MATERNAL EXPOSURE DURING PREGNANCY [None]
